FAERS Safety Report 8421197-2 (Version None)
Quarter: 2012Q2

REPORT INFORMATION
  Report Type: 
  Country: None (occurrence: None)
  Receive Date: 20120604
  Receipt Date: 20120604
  Transmission Date: 20120825
  Serious: No
  Sender: FDA-Public Use
  Company Number: None

PATIENT
  Age: 67 Year
  Sex: Male
  Weight: 106.1 kg

DRUGS (1)
  1. DALFAMPRIDINE [Suspect]
     Indication: MULTIPLE SCLEROSIS
     Dosage: 10 MG BID PO
     Route: 048
     Dates: start: 20110809, end: 20111004

REACTIONS (3)
  - GAIT DISTURBANCE [None]
  - DIZZINESS [None]
  - MULTIPLE SCLEROSIS RELAPSE [None]
